FAERS Safety Report 16371674 (Version 1)
Quarter: 2019Q3

REPORT INFORMATION
  Report Type: Spontaneous
  Country: US (occurrence: US)
  Receive Date: 20190529
  Receipt Date: 20190529
  Transmission Date: 20191004
  Serious: Yes (Hospitalization)
  Sender: FDA-Public Use
  Company Number: None

PATIENT
  Sex: Male

DRUGS (17)
  1. TEMOZOLOMIDE. [Suspect]
     Active Substance: TEMOZOLOMIDE
     Indication: BRAIN NEOPLASM MALIGNANT
     Dosage: ?          OTHER FREQUENCY:QD ON DAYS 1-5/28;?
     Route: 048
     Dates: start: 20181006
  2. DEXAMETHASON [Concomitant]
     Active Substance: DEXAMETHASONE
  3. MEGESTRAL [Concomitant]
  4. CITALOPRAM [Concomitant]
     Active Substance: CITALOPRAM HYDROBROMIDE
  5. PRAMIPEXOLE. [Concomitant]
     Active Substance: PRAMIPEXOLE
  6. ANTACID [Concomitant]
     Active Substance: ALUMINUM HYDROXIDE\CALCIUM CARBONATE\DIMETHICONE\MAGNESIUM HYDROXIDE
  7. LEVETIRACETA [Concomitant]
  8. METHYLPHENID [Concomitant]
     Active Substance: METHYLPHENIDATE
  9. SMZ/TMP [Concomitant]
     Active Substance: SULFAMETHOXAZOLE\TRIMETHOPRIM
  10. VITAMIN D3 [Concomitant]
     Active Substance: CHOLECALCIFEROL
  11. CIPROFLOXACN [Concomitant]
     Active Substance: CIPROFLOXACIN
  12. HUMULIN NOS [Concomitant]
     Active Substance: INSULIN HUMAN
  13. BACTRIM [Concomitant]
     Active Substance: SULFAMETHOXAZOLE\TRIMETHOPRIM
  14. METFORMIN [Concomitant]
     Active Substance: METFORMIN HYDROCHLORIDE
  15. OLANZAPINE. [Concomitant]
     Active Substance: OLANZAPINE
  16. FAMOTIDINE. [Concomitant]
     Active Substance: FAMOTIDINE
  17. ONDANSETRON [Concomitant]
     Active Substance: ONDANSETRON

REACTIONS (1)
  - Drug withdrawal convulsions [None]
